FAERS Safety Report 6472456-4 (Version None)
Quarter: 2009Q4

REPORT INFORMATION
  Report Type: 
  Country: None (occurrence: None)
  Receive Date: 20091201
  Receipt Date: 20091120
  Transmission Date: 20100525
  Serious: Yes (Other)
  Sender: FDA-Public Use
  Company Number: 2009SP037639

PATIENT
  Age: 41 Year
  Sex: Female
  Weight: 84.369 kg

DRUGS (1)
  1. IMPLANON [Suspect]
     Indication: DRUG USE FOR UNKNOWN INDICATION
     Dates: start: 20070723, end: 20091117

REACTIONS (1)
  - BREAST CANCER FEMALE [None]
